FAERS Safety Report 6429109-8 (Version None)
Quarter: 2009Q4

REPORT INFORMATION
  Report Type: 
  Country: None (occurrence: None)
  Receive Date: 20091030
  Receipt Date: 20091015
  Transmission Date: 20100525
  Serious: Yes (Other)
  Sender: FDA-Public Use
  Company Number: 2009002927

PATIENT
  Age: 58 Year
  Sex: Male

DRUGS (7)
  1. TARCEVA [Suspect]
     Indication: NON-SMALL CELL LUNG CANCER
     Dosage: 150 MG, QD, ORAL
     Route: 048
     Dates: start: 20080730
  2. BEVACIZUMAB [Suspect]
     Indication: NON-SMALL CELL LUNG CANCER
     Dosage: 15 MG/KG, 1 IN 3 WK, INTRAVENOUS
     Route: 042
     Dates: start: 20090911
  3. ENALAPRIL MALEATE [Concomitant]
  4. NORVASC [Concomitant]
  5. ZEMPLAR [Concomitant]
  6. HECTOROL [Concomitant]
  7. NEPHPLEX RX [Concomitant]

REACTIONS (1)
  - BLINDNESS UNILATERAL [None]
